FAERS Safety Report 10280282 (Version 2)
Quarter: 2014Q3

REPORT INFORMATION
  Report Type: Spontaneous
  Country: US (occurrence: US)
  Receive Date: 20140707
  Receipt Date: 20140709
  Transmission Date: 20150326
  Serious: Yes (Death, Hospitalization)
  Sender: FDA-Public Use
  Company Number: US-B.I. PHARMACEUTICALS,INC./RIDGEFIELD-2014-BI-30181BP

PATIENT
  Sex: Female

DRUGS (9)
  1. ETHAMBUTOL HCL [Concomitant]
     Active Substance: ETHAMBUTOL HYDROCHLORIDE
     Dosage: 100 MG
     Route: 048
  2. RIFAMPIN. [Concomitant]
     Active Substance: RIFAMPIN
     Dosage: 600 MG
     Route: 048
  3. GLIMEPRIDE [Concomitant]
     Dosage: 1 MG
     Route: 048
  4. ZITHROMYACIN [Concomitant]
     Dosage: 500 MG
     Route: 048
  5. METAXALONE. [Concomitant]
     Active Substance: METAXALONE
     Dosage: 3200 MG
     Route: 048
  6. DILTIAZEM HCL [Concomitant]
     Active Substance: DILTIAZEM HYDROCHLORIDE
     Dosage: 60 MG
     Route: 048
  7. SPIRIVA [Suspect]
     Active Substance: TIOTROPIUM BROMIDE MONOHYDRATE
     Indication: CHRONIC OBSTRUCTIVE PULMONARY DISEASE
     Dosage: 18 MCG
     Route: 055
  8. ETHAMBUTOL HCL [Concomitant]
     Active Substance: ETHAMBUTOL HYDROCHLORIDE
     Dosage: 400 MG
     Route: 048
  9. LEFLUNOMNMIDE [Concomitant]
     Dosage: 20 MG
     Route: 048

REACTIONS (1)
  - Pneumonia [Fatal]
